FAERS Safety Report 7414739-7 (Version None)
Quarter: 2011Q2

REPORT INFORMATION
  Report Type: 
  Country: None (occurrence: None)
  Receive Date: 20110414
  Receipt Date: 20110408
  Transmission Date: 20111010
  Serious: Yes (Other)
  Sender: FDA-Public Use
  Company Number: BR-ELI_LILLY_AND_COMPANY-BR201102002840

PATIENT
  Sex: Female

DRUGS (6)
  1. HUMULIN N [Suspect]
     Dosage: 12 IU, QD
     Route: 065
     Dates: start: 19750101
  2. PURAN T4 [Concomitant]
     Dosage: 50 MG, UNKNOWN
     Route: 065
  3. CLOXAZOLAM [Concomitant]
     Dosage: 1 MG, UNKNOWN
     Route: 065
  4. HUMULIN N [Suspect]
     Dosage: 8 IU, EACH EVENING
     Route: 065
     Dates: start: 19750101
  5. HUMULIN R [Suspect]
     Indication: DIABETES MELLITUS
     Dosage: UNK, UNKNOWN
     Route: 065
     Dates: start: 20100101
  6. HUMULIN N [Suspect]
     Indication: DIABETES MELLITUS
     Dosage: 20 IU, EACH MORNING
     Route: 065
     Dates: start: 19750101

REACTIONS (13)
  - EMOTIONAL DISORDER [None]
  - OCULAR HYPERTENSION [None]
  - RETINAL HAEMORRHAGE [None]
  - DIABETES MELLITUS INADEQUATE CONTROL [None]
  - EYE PRURITUS [None]
  - VISION BLURRED [None]
  - CATARACT [None]
  - BLINDNESS UNILATERAL [None]
  - RETINAL DETACHMENT [None]
  - DEPRESSION [None]
  - HYPERGLYCAEMIA [None]
  - PANIC DISORDER [None]
  - BLOOD PRESSURE INCREASED [None]
